FAERS Safety Report 18893107 (Version 1)
Quarter: 2021Q1

REPORT INFORMATION
  Report Type: Spontaneous
  Country: US (occurrence: US)
  Receive Date: 20210215
  Receipt Date: 20210215
  Transmission Date: 20210420
  Serious: No
  Sender: FDA-Public Use
  Company Number: US-SA-2021SA042373

PATIENT
  Age: 50 Year
  Sex: Male

DRUGS (24)
  1. FABRAZYME [Suspect]
     Active Substance: AGALSIDASE BETA
     Indication: FABRY^S DISEASE
     Dosage: 85 MG, QOW
     Route: 042
     Dates: start: 20100308
  2. PARICALCITOL. [Concomitant]
     Active Substance: PARICALCITOL
  3. LORATADINE. [Concomitant]
     Active Substance: LORATADINE
  4. EPINEPHRINE. [Concomitant]
     Active Substance: EPINEPHRINE
  5. APO VENLAFAXINE [Concomitant]
     Active Substance: VENLAFAXINE HYDROCHLORIDE
  6. PREDNISONE. [Concomitant]
     Active Substance: PREDNISONE
  7. AMLODIPINA [AMLODIPINE] [Concomitant]
     Active Substance: AMLODIPINE BESYLATE
  8. LIDOCAINE. [Concomitant]
     Active Substance: LIDOCAINE
  9. NORMAL SALINE [Concomitant]
     Active Substance: SODIUM CHLORIDE
  10. VITAMIN D3 [Concomitant]
     Active Substance: CHOLECALCIFEROL
  11. MUPIROCIN. [Concomitant]
     Active Substance: MUPIROCIN
  12. IMODIUM [Concomitant]
     Active Substance: LOPERAMIDE HYDROCHLORIDE
  13. FLUTICASONE. [Concomitant]
     Active Substance: FLUTICASONE
  14. FENOFIBRATE. [Concomitant]
     Active Substance: FENOFIBRATE
  15. DIPHENHYDRAMINE. [Concomitant]
     Active Substance: DIPHENHYDRAMINE
  16. GABAPENTIN. [Concomitant]
     Active Substance: GABAPENTIN
  17. PSYLLIUM FIBRE [Concomitant]
     Active Substance: HERBALS\PLANTAGO OVATA SEED COAT
  18. SUPER B COMPLEX WITH VITAMIN C [Concomitant]
  19. AURYXIA [Concomitant]
     Active Substance: TETRAFERRIC TRICITRATE DECAHYDRATE
  20. METOPROLOL. [Concomitant]
     Active Substance: METOPROLOL
  21. SENSIPAR [Concomitant]
     Active Substance: CINACALCET HYDROCHLORIDE
  22. HEPARIN [Concomitant]
     Active Substance: HEPARIN SODIUM
  23. LOPERAMIDE [Concomitant]
     Active Substance: LOPERAMIDE
  24. TRAMADOL. [Concomitant]
     Active Substance: TRAMADOL

REACTIONS (2)
  - COVID-19 [Unknown]
  - SARS-CoV-2 test positive [Unknown]

NARRATIVE: CASE EVENT DATE: 20201226
